FAERS Safety Report 4681477-3 (Version None)
Quarter: 2005Q2

REPORT INFORMATION
  Report Type: 
  Country: None (occurrence: None)
  Receive Date: 20050601
  Receipt Date: 20050514
  Transmission Date: 20051028
  Serious: Yes (Hospitalization)
  Sender: FDA-Public Use
  Company Number: USA050598371

PATIENT
  Age: 14 Year
  Sex: Female

DRUGS (2)
  1. STRATTERA [Suspect]
  2. PROZAC [Suspect]

REACTIONS (3)
  - CHOLELITHIASIS [None]
  - HYPERPHAGIA [None]
  - WEIGHT INCREASED [None]
